FAERS Safety Report 8186780-0 (Version None)
Quarter: 2012Q1

REPORT INFORMATION
  Report Type: 
  Country: None (occurrence: None)
  Receive Date: 20120306
  Receipt Date: 20120306
  Transmission Date: 20120608
  Serious: Yes (Hospitalization)
  Sender: FDA-Public Use
  Company Number: None

PATIENT
  Age: 67 Year
  Sex: Male
  Weight: 106.9 kg

DRUGS (1)
  1. LIRAGLUTIDE [Suspect]
     Indication: TYPE 2 DIABETES MELLITUS
     Dosage: 1.8MG
     Route: 058

REACTIONS (12)
  - CHOLELITHIASIS [None]
  - SCAR [None]
  - ABDOMINAL PAIN UPPER [None]
  - DIVERTICULUM INTESTINAL [None]
  - LUNG INFILTRATION [None]
  - NAUSEA [None]
  - HEPATOSPLENOMEGALY [None]
  - LIVER FUNCTION TEST ABNORMAL [None]
  - HEPATIC STEATOSIS [None]
  - GALLBLADDER POLYP [None]
  - ATELECTASIS [None]
  - PANCREATITIS [None]
